FAERS Safety Report 8863036 (Version 1)
Quarter: 2012Q4

REPORT INFORMATION
  Report Type: 
  Country: US (occurrence: US)
  Receive Date: 20121026
  Receipt Date: 20121026
  Transmission Date: 20130627
  Serious: Yes (Other)
  Sender: FDA-Public Use
  Company Number: US-ELI_LILLY_AND_COMPANY-US201210005384

PATIENT
  Sex: Female

DRUGS (2)
  1. CYMBALTA [Suspect]
     Indication: DEPRESSION
     Dosage: 60 mg, qd
     Dates: end: 201210
  2. LORAZEPAM [Concomitant]

REACTIONS (8)
  - Renal failure [Unknown]
  - Drug withdrawal syndrome [Unknown]
  - Pain [Unknown]
  - Headache [Unknown]
  - Nightmare [Unknown]
  - Hyperhidrosis [Unknown]
  - Screaming [Unknown]
  - Panic attack [Unknown]
